FAERS Safety Report 5901828-9 (Version None)
Quarter: 2008Q3

REPORT INFORMATION
  Report Type: 
  Country: None (occurrence: None)
  Receive Date: 20080929
  Receipt Date: 20080917
  Transmission Date: 20090109
  Serious: Yes (Other)
  Sender: FDA-Public Use
  Company Number: BR-ROCHE-585529

PATIENT
  Age: 24 Year
  Sex: Male
  Weight: 86 kg

DRUGS (6)
  1. ROACUTAN [Suspect]
     Indication: ACNE
     Dosage: STRENGTH AND FORMULATION REPORTED : 20 MG / CAPSULE
     Route: 048
     Dates: start: 20070101
  2. ROACUTAN [Suspect]
     Dosage: STRENGTH AND FORMULATION REPORTED : 20 MG / CAPSULE
     Route: 048
     Dates: start: 20070501, end: 20070601
  3. ROACUTAN [Suspect]
     Dosage: STRENGTH AND FORMULATION REPORTED : 20 + 10 MG / CAPSULE
     Route: 048
     Dates: start: 20070701, end: 20070701
  4. ROACUTAN [Suspect]
     Dosage: STRENGTH AND FORMULATION REPORTED : 20 + 10 MG / CAPSULE
     Route: 048
     Dates: start: 20070801, end: 20070801
  5. ROACUTAN [Suspect]
     Dosage: STRENGTH AND FORMULATION REPORTED : 20 MG / CAPSULE
     Route: 048
     Dates: start: 20070901, end: 20071201
  6. ROACUTAN [Suspect]
     Dosage: STRENGTH AND FORMULATION REPORTED : 20 MG / CAPSULE
     Route: 048
     Dates: end: 20080101

REACTIONS (4)
  - ARTHROPATHY [None]
  - BLOOD CHOLESTEROL INCREASED [None]
  - BLOOD TRIGLYCERIDES INCREASED [None]
  - WEIGHT DECREASED [None]
